FAERS Safety Report 19010961 (Version 2)
Quarter: 2021Q1

REPORT INFORMATION
  Report Type: Report from Study
  Country: ES (occurrence: ES)
  Receive Date: 20210316
  Receipt Date: 20210325
  Transmission Date: 20210420
  Serious: Yes (Death, Hospitalization)
  Sender: FDA-Public Use
  Company Number: ES-ROCHE-2786882

PATIENT
  Age: 76 Year
  Sex: Male
  Weight: 110 kg

DRUGS (11)
  1. TRASTUZUMAB. [Suspect]
     Active Substance: TRASTUZUMAB
     Indication: HER2 POSITIVE GASTRIC CANCER
     Dosage: LAST ADMINISTRATION BEFORE SAE WAS 25/FEB/2021
     Route: 041
     Dates: start: 20210204
  2. PERTUZUMAB. [Suspect]
     Active Substance: PERTUZUMAB
     Indication: HER2 POSITIVE GASTRIC CANCER
     Dosage: LAST ADMINISTRATION BEFORE SAE WAS 25/FEB/2021
     Route: 042
     Dates: start: 20210204
  3. OXALIPLATIN. [Suspect]
     Active Substance: OXALIPLATIN
     Indication: HER2 POSITIVE GASTRIC CANCER
     Dosage: LAST ADMINISTRATION BEFORE SAE OCCURRED WAS ON 25/FEB/2021
     Route: 042
     Dates: start: 20210204
  4. PIPERACILLIN AND TAZOBACTAM [Concomitant]
     Active Substance: PIPERACILLIN SODIUM\TAZOBACTAM SODIUM
     Route: 042
     Dates: start: 20210310, end: 20210311
  5. DOCETAXEL. [Suspect]
     Active Substance: DOCETAXEL
     Indication: HER2 POSITIVE GASTRIC CANCER
     Dosage: LAST ADMINISTRATION BEFORE SAE OCCURRED WAS ON 25/FEB/2021
     Route: 042
     Dates: start: 20210204
  6. MORPHINE [Concomitant]
     Active Substance: MORPHINE
     Route: 042
     Dates: start: 20210305, end: 20210310
  7. AMIKACIN. [Concomitant]
     Active Substance: AMIKACIN
     Route: 042
     Dates: start: 20210310, end: 20210311
  8. PLATELETS [Concomitant]
     Active Substance: HUMAN PLATELET, ALLOGENIC
     Dates: start: 20210310
  9. LEUCOVORIN. [Suspect]
     Active Substance: LEUCOVORIN
     Indication: HER2 POSITIVE GASTRIC CANCER
     Dosage: LAST ADMINISTRATION BEFORE SAE OCCURRED WAS ON 25/FEB/2021
     Route: 042
     Dates: start: 20210204
  10. SALINE [Concomitant]
     Active Substance: SODIUM CHLORIDE
     Dates: start: 20210310
  11. FLUOROURACIL. [Suspect]
     Active Substance: FLUOROURACIL
     Indication: HER2 POSITIVE GASTRIC CANCER
     Dosage: LAST ADMINISTRATION DATE BEFORE SAE OCCURRED WAS ON 25/FEB/2021
     Route: 042
     Dates: start: 20210204

REACTIONS (3)
  - Neutrophil count decreased [Fatal]
  - Sepsis [Fatal]
  - Mucosal inflammation [Not Recovered/Not Resolved]

NARRATIVE: CASE EVENT DATE: 20210305
